FAERS Safety Report 9629785 (Version 2)
Quarter: 2013Q4

REPORT INFORMATION
  Report Type: Spontaneous
  Country: US (occurrence: US)
  Receive Date: 20131017
  Receipt Date: 20131017
  Transmission Date: 20140711
  Serious: Yes (Other)
  Sender: FDA-Public Use
  Company Number: US-PFIZER INC-2013254098

PATIENT
  Age: 56 Year
  Sex: Female
  Weight: 86.53 kg

DRUGS (14)
  1. ENBREL [Suspect]
     Indication: RHEUMATOID ARTHRITIS
     Dosage: 50 MG, QWK
     Route: 065
     Dates: start: 20120901
  2. MEDROL [Suspect]
     Dosage: UNK
     Route: 065
  3. PREDNISONE [Suspect]
     Dosage: UNK
     Route: 065
  4. PREMARIN [Concomitant]
     Dosage: 1.25 MG, 1 TABLET DAILY
  5. SPIRONOLACTONE [Concomitant]
     Dosage: UNK UNK, BID
     Route: 048
  6. VITAMIN D [Concomitant]
     Dosage: 1000 UNIT, 2 TABLET DAILY
  7. POTASSIUM CHLORIDE [Concomitant]
     Dosage: 20 MEQ, 1 TABLET TWICE A DAY
  8. HYZAAR [Concomitant]
     Dosage: 100-12.5 MG, 1 TABLET DAILY
  9. TYLENOL SINUS [Concomitant]
     Dosage: UNK UNK, AS NECESSARY
  10. FISH OIL [Concomitant]
     Dosage: AS DIRECTED
  11. VITAMIN C [Concomitant]
     Dosage: AS DIRECTED
  12. BIOTIN [Concomitant]
     Dosage: 1 CAPSULE DAILY
  13. TRAMADOL [Concomitant]
     Dosage: 50 MG, 1-2 TABLET TID
  14. HYDROMORPHONE HCL [Concomitant]
     Indication: RHEUMATOID ARTHRITIS
     Dosage: 4 MG, 1/2 PO PRN Q 3-4 HRS
     Route: 048

REACTIONS (25)
  - Polyneuropathy [Unknown]
  - Hyperaldosteronism [Unknown]
  - Aortitis [Unknown]
  - Adrenal neoplasm [Unknown]
  - Tuberculosis [Unknown]
  - Bone loss [Not Recovered/Not Resolved]
  - Loose tooth [Not Recovered/Not Resolved]
  - Tooth disorder [Not Recovered/Not Resolved]
  - Joint swelling [Unknown]
  - Arthralgia [Unknown]
  - Joint stiffness [Unknown]
  - Oedema peripheral [Unknown]
  - Breast discharge [Unknown]
  - Costochondritis [Unknown]
  - Synovitis [Unknown]
  - Joint warmth [Unknown]
  - Erythema [Unknown]
  - Muscle spasms [Unknown]
  - Gastrooesophageal reflux disease [Unknown]
  - Headache [Unknown]
  - Hyperlipidaemia [Unknown]
  - Hypertension [Unknown]
  - Hypokalaemia [Unknown]
  - Hypersensitivity [Unknown]
  - Chest pain [Unknown]
